FAERS Safety Report 8480087-X (Version None)
Quarter: 2012Q2

REPORT INFORMATION
  Report Type: 
  Country: None (occurrence: None)
  Receive Date: 20120629
  Receipt Date: 20120618
  Transmission Date: 20120825
  Serious: Yes (Hospitalization)
  Sender: FDA-Public Use
  Company Number: SE-ELI_LILLY_AND_COMPANY-SE201205010660

PATIENT
  Sex: Female

DRUGS (4)
  1. STRATTERA [Suspect]
     Dosage: UNK
     Route: 048
     Dates: start: 20120301
  2. STRATTERA [Suspect]
     Dosage: 7 DF, UNK
     Dates: start: 20120401, end: 20120401
  3. FORLAX [Concomitant]
  4. KEPPRA [Concomitant]

REACTIONS (5)
  - DIET REFUSAL [None]
  - SOCIAL AVOIDANT BEHAVIOUR [None]
  - COLD SWEAT [None]
  - VOMITING [None]
  - OVERDOSE [None]
